FAERS Safety Report 6250602-5 (Version None)
Quarter: 2009Q2

REPORT INFORMATION
  Report Type: 
  Country: None (occurrence: None)
  Receive Date: 20090626
  Receipt Date: 20090611
  Transmission Date: 20091009
  Serious: Yes (Other)
  Sender: FDA-Public Use
  Company Number: DSM-2009-00792

PATIENT
  Age: 50 Year
  Sex: Male

DRUGS (1)
  1. OLMESARTAN MEDOXOMIL AND HYDROCHLOROTHIZIDE [Suspect]
     Indication: DRUG USE FOR UNKNOWN INDICATION
     Dosage: 20/12.5MG, ORAL
     Route: 048
     Dates: start: 20081020

REACTIONS (4)
  - ABDOMINAL DISCOMFORT [None]
  - COLITIS MICROSCOPIC [None]
  - DIARRHOEA [None]
  - INFLUENZA LIKE ILLNESS [None]
